FAERS Safety Report 25342227 (Version 3)
Quarter: 2025Q2

REPORT INFORMATION
  Report Type: Report from Study
  Country: FR (occurrence: FR)
  Receive Date: 20250521
  Receipt Date: 20250613
  Transmission Date: 20250717
  Serious: Yes (Hospitalization)
  Sender: ABBVIE
  Company Number: FR-ABBVIE-6280647

PATIENT
  Age: 38 Year
  Sex: Male
  Weight: 85 kg

DRUGS (7)
  1. RISANKIZUMAB [Suspect]
     Active Substance: RISANKIZUMAB
     Indication: Crohn^s disease
     Route: 042
     Dates: start: 20250404
  2. IMUREL [Concomitant]
     Indication: Autoimmune hepatitis
     Route: 048
     Dates: start: 201510, end: 20250507
  3. ENTOCORT [Concomitant]
     Active Substance: BUDESONIDE
     Indication: Autoimmune hepatitis
     Route: 048
     Dates: start: 201912
  4. URSODIOL [Concomitant]
     Active Substance: URSODIOL
     Indication: Cholangitis sclerosing
     Route: 048
     Dates: start: 202008
  5. GAVISCON [Concomitant]
     Active Substance: ALUMINUM HYDROXIDE\MAGNESIUM CARBONATE
     Indication: Gastrooesophageal reflux disease
     Route: 048
     Dates: start: 2022
  6. CHOLECALCIFEROL [Concomitant]
     Active Substance: CHOLECALCIFEROL
     Indication: Vitamin D deficiency
     Route: 048
     Dates: start: 202102
  7. ENOXAPARIN [Concomitant]
     Active Substance: ENOXAPARIN
     Indication: Vascular disorder prophylaxis
     Route: 058
     Dates: start: 20250508, end: 20250515

REACTIONS (2)
  - Cholangitis [Recovered/Resolved]
  - Cholangitis [Recovered/Resolved]

NARRATIVE: CASE EVENT DATE: 20250507
